FAERS Safety Report 8103298-1 (Version None)
Quarter: 2012Q1

REPORT INFORMATION
  Report Type: 
  Country: None (occurrence: None)
  Receive Date: 20120127
  Receipt Date: 20120124
  Transmission Date: 20120608
  Serious: Yes (Hospitalization, Disabling)
  Sender: FDA-Public Use
  Company Number: 2010SP063654

PATIENT
  Age: 36 Year
  Sex: Female
  Weight: 61.2356 kg

DRUGS (7)
  1. NUVARING [Suspect]
     Indication: DYSMENORRHOEA
     Dates: start: 20040520
  2. NUVARING [Suspect]
     Indication: VAGINITIS BACTERIAL
     Dates: start: 20040520
  3. NUVARING [Suspect]
     Indication: FUNGAL INFECTION
     Dates: start: 20040520
  4. NUVARING [Suspect]
     Indication: DYSMENORRHOEA
     Dates: start: 20080825, end: 20081201
  5. NUVARING [Suspect]
     Indication: VAGINITIS BACTERIAL
     Dates: start: 20080825, end: 20081201
  6. NUVARING [Suspect]
     Indication: FUNGAL INFECTION
     Dates: start: 20080825, end: 20081201
  7. LEXAPRO [Suspect]
     Indication: PRODUCT USED FOR UNKNOWN INDICATION

REACTIONS (96)
  - INSOMNIA [None]
  - IRRITABLE BOWEL SYNDROME [None]
  - ACCIDENT AT WORK [None]
  - MASTOPTOSIS [None]
  - BACK PAIN [None]
  - CENTRAL NERVOUS SYSTEM LESION [None]
  - RESTLESS LEGS SYNDROME [None]
  - OSTEOARTHRITIS [None]
  - VAGINITIS BACTERIAL [None]
  - MYOSITIS [None]
  - NASOPHARYNGITIS [None]
  - MUSCULOSKELETAL CHEST PAIN [None]
  - ASTHENIA [None]
  - APATHY [None]
  - CHEST DISCOMFORT [None]
  - EPSTEIN-BARR VIRUS INFECTION [None]
  - HYPERCOAGULATION [None]
  - MUSCLE STRAIN [None]
  - IMPAIRED WORK ABILITY [None]
  - UTERINE LEIOMYOMA [None]
  - MENOMETRORRHAGIA [None]
  - ACUTE SINUSITIS [None]
  - RASH [None]
  - MIGRAINE [None]
  - NAUSEA [None]
  - SNORING [None]
  - LOSS OF LIBIDO [None]
  - ANGER [None]
  - WEIGHT DECREASED [None]
  - DIZZINESS [None]
  - VERTIGO POSITIONAL [None]
  - FRUSTRATION [None]
  - FIBROMYALGIA [None]
  - PAIN [None]
  - BURSITIS [None]
  - HERPES DERMATITIS [None]
  - FEELING JITTERY [None]
  - URINARY TRACT INFECTION [None]
  - JOINT SWELLING [None]
  - WEIGHT INCREASED [None]
  - LISTLESS [None]
  - TRICUSPID VALVE INCOMPETENCE [None]
  - LYMPHADENOPATHY [None]
  - OEDEMA PERIPHERAL [None]
  - PHARYNGITIS [None]
  - CERVICAL DYSPLASIA [None]
  - DRUG INTOLERANCE [None]
  - FATIGUE [None]
  - DRUG EFFECT DECREASED [None]
  - SEDATION [None]
  - NECK PAIN [None]
  - ABDOMINAL DISTENSION [None]
  - PARAESTHESIA [None]
  - HYPERSENSITIVITY [None]
  - BRUXISM [None]
  - ARTERIAL DISORDER [None]
  - LABYRINTHITIS [None]
  - DYSURIA [None]
  - SUICIDAL IDEATION [None]
  - MULTIPLE INJURIES [None]
  - CEREBELLAR HAEMORRHAGE [None]
  - PULMONARY EMBOLISM [None]
  - INFECTIOUS MONONUCLEOSIS [None]
  - BLOOD 1,25-DIHYDROXYCHOLECALCIFEROL DECREASED [None]
  - SLEEP APNOEA SYNDROME [None]
  - FLATULENCE [None]
  - MUSCLE SPASMS [None]
  - HOT FLUSH [None]
  - HYPERHIDROSIS [None]
  - HYPOTENSION [None]
  - MENIERE'S DISEASE [None]
  - MOOD SWINGS [None]
  - MAJOR DEPRESSION [None]
  - INFLUENZA LIKE ILLNESS [None]
  - PELVIC PAIN [None]
  - PYREXIA [None]
  - CONSTIPATION [None]
  - NIGHTMARE [None]
  - MEMORY IMPAIRMENT [None]
  - SOMNOLENCE [None]
  - TINNITUS [None]
  - BRADYKINESIA [None]
  - HEADACHE [None]
  - INTERNATIONAL NORMALISED RATIO INCREASED [None]
  - DYSGEUSIA [None]
  - ONYCHOCLASIS [None]
  - DIPLOPIA [None]
  - PREMENSTRUAL SYNDROME [None]
  - TREATMENT NONCOMPLIANCE [None]
  - MICTURITION URGENCY [None]
  - OVARIAN CYST [None]
  - PAIN IN EXTREMITY [None]
  - SLEEP DISORDER [None]
  - VULVOVAGINAL CANDIDIASIS [None]
  - VIRAL INFECTION [None]
  - DRY EYE [None]
